FAERS Safety Report 8276066-8 (Version None)
Quarter: 2012Q2

REPORT INFORMATION
  Report Type: 
  Country: None (occurrence: None)
  Receive Date: 20120412
  Receipt Date: 20120328
  Transmission Date: 20120825
  Serious: Yes (Other)
  Sender: FDA-Public Use
  Company Number: US-JNJFOC-20120305716

PATIENT
  Age: 32 Year
  Sex: Female
  Weight: 54.43 kg

DRUGS (3)
  1. NUCYNTA [Suspect]
     Indication: FIBROMYALGIA
     Dosage: 3 TIMES A DAY
     Route: 048
     Dates: start: 20120201, end: 20120306
  2. NUCYNTA [Suspect]
     Dosage: TWICE A DAY
     Route: 048
     Dates: start: 20120306
  3. NUCYNTA [Suspect]
     Dosage: 4 TIMES A DAY
     Route: 048
     Dates: start: 20110101, end: 20120201

REACTIONS (5)
  - PLATELET COUNT INCREASED [None]
  - PANIC ATTACK [None]
  - TREATMENT NONCOMPLIANCE [None]
  - WITHDRAWAL SYNDROME [None]
  - LYMPHADENOPATHY [None]
